FAERS Safety Report 8016049-6 (Version None)
Quarter: 2011Q4

REPORT INFORMATION
  Report Type: 
  Country: None (occurrence: None)
  Receive Date: 20111223
  Receipt Date: 20111212
  Transmission Date: 20120403
  Serious: Yes (Death)
  Sender: FDA-Public Use
  Company Number: JP-2011-13016

PATIENT
  Age: 77 Year
  Sex: Male

DRUGS (6)
  1. ASPIRIN [Concomitant]
  2. HEPARIN AND PREPARATIONS (HEPARIN AND PREPARATIONS) [Concomitant]
  3. EDARAVONE (EDARAVONE) INJECTION [Concomitant]
  4. ATORVASTATIN CALCIUM HYDRATE (ATORVASTATIN CALCIUM HYDRATE) TABLET [Concomitant]
  5. PLETAL [Suspect]
     Indication: BRAIN STEM INFARCTION
     Dosage: ORAL
     Route: 048
     Dates: start: 20090101
  6. DEXTRAN, DERIVATIVES AND PREPARATIONS (DEXTRAN, DERIVATIVES AND PREPAR [Concomitant]

REACTIONS (3)
  - QUADRIPLEGIA [None]
  - PNEUMONIA ASPIRATION [None]
  - RESPIRATORY FAILURE [None]
